FAERS Safety Report 10877356 (Version 1)
Quarter: 2015Q1

REPORT INFORMATION
  Report Type: Spontaneous
  Country: KR (occurrence: KR)
  Receive Date: 20150302
  Receipt Date: 20150302
  Transmission Date: 20150721
  Serious: Yes (Other)
  Sender: FDA-Public Use
  Company Number: KR-BAYER-2015-028339

PATIENT
  Age: 28 Year
  Sex: Female

DRUGS (1)
  1. MIRENA [Suspect]
     Active Substance: LEVONORGESTREL
     Dosage: UNK
     Dates: start: 20150128, end: 20150217

REACTIONS (3)
  - Urinary retention [None]
  - Dysuria [None]
  - Cystitis [None]

NARRATIVE: CASE EVENT DATE: 2015
